FAERS Safety Report 6509508-6 (Version None)
Quarter: 2009Q4

REPORT INFORMATION
  Report Type: 
  Country: None (occurrence: None)
  Receive Date: 20091222
  Receipt Date: 20091216
  Transmission Date: 20100525
  Serious: Yes (Hospitalization)
  Sender: FDA-Public Use
  Company Number: DE-BRISTOL-MYERS SQUIBB COMPANY-14221022

PATIENT
  Age: 69 Year
  Sex: Male
  Weight: 84 kg

DRUGS (5)
  1. CISPLATIN [Suspect]
     Indication: HYPOPHARYNGEAL CANCER
     Dosage: FIRST CYCLE: 06-MAR-2008
     Route: 042
     Dates: start: 20080306
  2. BLINDED: PLACEBO [Suspect]
     Indication: HYPOPHARYNGEAL CANCER
     Dosage: FIRST DOSE: 06-MAR-2008 DOSE: 1053 MG. RECENT :20MAY08
     Route: 042
     Dates: start: 20080306
  3. FOLIC ACID [Concomitant]
     Indication: PROPHYLAXIS
     Dates: start: 20080227
  4. VITAMIN B-12 [Concomitant]
     Indication: PROPHYLAXIS
     Dates: start: 20080227
  5. DEXAMETHASONE TAB [Concomitant]
     Indication: PROPHYLAXIS

REACTIONS (1)
  - POST PROCEDURAL HAEMORRHAGE [None]
